FAERS Safety Report 6480131-5 (Version None)
Quarter: 2009Q4

REPORT INFORMATION
  Report Type: 
  Country: None (occurrence: None)
  Receive Date: 20091208
  Receipt Date: 20091125
  Transmission Date: 20100525
  Serious: Yes (Disabling)
  Sender: FDA-Public Use
  Company Number: US-PFIZER INC-2009303958

PATIENT
  Sex: Male
  Weight: 90.718 kg

DRUGS (2)
  1. VIAGRA [Suspect]
     Route: 048
     Dates: start: 20091112
  2. ASPIRIN [Concomitant]
     Indication: RHINORRHOEA
     Dates: end: 20091124

REACTIONS (1)
  - VISUAL ACUITY REDUCED [None]
